FAERS Safety Report 14901681 (Version 1)
Quarter: 2018Q2

REPORT INFORMATION
  Report Type: Spontaneous
  Country: US (occurrence: US)
  Receive Date: 20180430
  Receipt Date: 20180430
  Transmission Date: 20180711
  Serious: No
  Sender: FDA-Public Use
  Company Number: None

PATIENT
  Age: 19 Year
  Sex: Female
  Weight: 56.25 kg

DRUGS (2)
  1. LEXAPRO [Concomitant]
     Active Substance: ESCITALOPRAM OXALATE
  2. ARIPIPRAZOLE. [Suspect]
     Active Substance: ARIPIPRAZOLE
     Indication: ANOREXIA NERVOSA
     Dosage: ?          QUANTITY:0.25 TABLET(S);?
     Route: 048
     Dates: start: 20180419, end: 20180426

REACTIONS (2)
  - Self-injurious ideation [None]
  - Suicidal ideation [None]

NARRATIVE: CASE EVENT DATE: 20180426
